FAERS Safety Report 7321847-8 (Version None)
Quarter: 2011Q1

REPORT INFORMATION
  Report Type: 
  Country: None (occurrence: None)
  Receive Date: 20110216
  Receipt Date: 20110202
  Transmission Date: 20110831
  Serious: Yes (Hospitalization)
  Sender: FDA-Public Use
  Company Number: DSM-2011-00160

PATIENT
  Age: 78 Year
  Sex: Female

DRUGS (10)
  1. STILNOX (ZOLPIDEM) (TABLET) (ZOLPIDEM) [Suspect]
     Indication: INSOMNIA
     Dosage: 10 MG (10 MG, 1 IN 1 D), ORAL
     Route: 048
     Dates: end: 20110112
  2. PARIET (RABEPRAZOLE SODIUM) (TABLET) (RABEPRAZOLE SODIUM) [Suspect]
     Indication: PRODUCT USED FOR UNKNOWN INDICATION
     Dosage: 10 MG (10 MG, 1 IN 1 D), ORAL
     Route: 048
     Dates: end: 20110112
  3. KARDEGIC (ACETYLSALICYLATE LYSINE) (ACETYLSALICYLATE LYSINE) [Concomitant]
  4. DIFFU K (POTASSIUM CHLORIDE) (POTASSIUM CHLORIDE) [Concomitant]
  5. CACIT D3 (COLECALCIFEROL, CALCIUM CARBONATE) (COLECALCIFEROL, CALCIUM [Concomitant]
  6. SIFROL (PRAMIPEXOLE DIHYDROCHLORIDE) (PRAMIPEXOLE DIHYDROCHLORIDE) [Concomitant]
  7. ALDALIX (SPIRONOLACTONE, FUROSEMIDE) (CAPSULE) (SPIRONOLACTONE, FUROSE [Suspect]
     Indication: HYPERTENSION
     Dosage: 50/20 MG (1 IN 1 D), ORAL
     Route: 048
     Dates: end: 20110112
  8. OLMETEC (OLMESARTAN MEDOXOMIL) (TABLET) (OLMESARTAN [Suspect]
     Indication: HYPERTENSION
     Dosage: 20 MG (20 MG, 1 IN 1 D), ORAL
     Route: 048
     Dates: end: 20110112
  9. TANAKAN (GINKGO BILBOA) (GINKGO BILOBA) [Concomitant]
  10. ZANIDIP (LERCANIDIPINE HYDROCHLORIDE) (TABLET) (LERCANIDIPINE HYDROCHL [Suspect]
     Indication: HYPERTENSION
     Dosage: 10 MG (10 MG, 1 IN 1 D), ORAL
     Route: 048
     Dates: end: 20110112

REACTIONS (4)
  - NAUSEA [None]
  - VOMITING [None]
  - HYPONATRAEMIA [None]
  - MALAISE [None]
